FAERS Safety Report 10024461 (Version 1)
Quarter: 2014Q1

REPORT INFORMATION
  Report Type: Spontaneous
  Country: US (occurrence: None)
  Receive Date: 20140319
  Receipt Date: 20140319
  Transmission Date: 20141002
  Serious: Yes (Death)
  Sender: FDA-Public Use
  Company Number: None

PATIENT
  Sex: Male
  Weight: 92 kg

DRUGS (1)
  1. BLEOMYCIN [Suspect]
     Indication: HODGKIN^S DISEASE
     Dosage: 22.2 UNITS EVERY 2 WEEKS
     Route: 042
     Dates: start: 20130726, end: 20131107

REACTIONS (4)
  - Respiratory failure [None]
  - Toxicity to various agents [None]
  - Cough [None]
  - Pyrexia [None]
